FAERS Safety Report 9564794 (Version 2)
Quarter: 2013Q4

REPORT INFORMATION
  Report Type: Spontaneous
  Country: IT (occurrence: IT)
  Receive Date: 20130930
  Receipt Date: 20131008
  Transmission Date: 20140711
  Serious: Yes (Hospitalization)
  Sender: FDA-Public Use
  Company Number: PHHY2013IT108072

PATIENT
  Age: 72 Year
  Sex: Male

DRUGS (5)
  1. DICLOFENAC [Suspect]
     Indication: RHEUMATOID ARTHRITIS
     Dosage: 1 DF, PRN (UPON NEEDED)
     Dates: start: 20110901, end: 20130905
  2. NIMESULIDE [Suspect]
     Indication: RHEUMATOID ARTHRITIS
     Dosage: 1 DF, PRN (UPON NEEDED)
     Dates: start: 20110901, end: 20130905
  3. METHOTREXATE [Suspect]
     Indication: RHEUMATOID ARTHRITIS
     Dosage: 7.5 MG, WEEKLY
     Route: 048
     Dates: start: 20080901
  4. CARDIOASPIRIN [Suspect]
     Indication: MYOCARDIAL INFARCTION
     Dosage: 1 DF, DAILY
     Route: 048
     Dates: start: 20110901, end: 20130905
  5. DILATREND [Concomitant]
     Indication: HYPERTENSION
     Dosage: UNK UKN, UNK

REACTIONS (4)
  - Duodenal ulcer [Recovering/Resolving]
  - Haematemesis [Recovering/Resolving]
  - Melaena [Recovering/Resolving]
  - Oesophagitis [Recovering/Resolving]
